FAERS Safety Report 10439932 (Version 1)
Quarter: 2014Q3

REPORT INFORMATION
  Report Type: Spontaneous
  Country: NL (occurrence: None)
  Receive Date: 20140905
  Receipt Date: 20140905
  Transmission Date: 20150326
  Serious: Yes (Hospitalization)
  Sender: FDA-Public Use
  Company Number: NL-AIKEM-000698

PATIENT
  Age: 29 Year
  Sex: Male

DRUGS (2)
  1. CEFUROXIME. [Suspect]
     Active Substance: CEFUROXIME
     Indication: APPENDICITIS
     Route: 042
  2. METRONIDAZOLE. [Suspect]
     Active Substance: METRONIDAZOLE
     Indication: APPENDICITIS
     Route: 042

REACTIONS (4)
  - Activated partial thromboplastin time prolonged [None]
  - Anti factor V antibody positive [None]
  - Abdominal abscess [None]
  - Prothrombin time prolonged [None]
